FAERS Safety Report 4646168-3 (Version None)
Quarter: 2005Q2

REPORT INFORMATION
  Report Type: 
  Country: None (occurrence: None)
  Receive Date: 20050425
  Receipt Date: 20050408
  Transmission Date: 20051028
  Serious: No
  Sender: FDA-Public Use
  Company Number: 10884

PATIENT
  Age: 41 Year
  Sex: Female

DRUGS (7)
  1. CYTARABINE [Suspect]
     Indication: STEM CELL TRANSPLANT
  2. ETOPOSIDE [Suspect]
     Indication: STEM CELL TRANSPLANT
  3. ALEMTUZUMAB [Suspect]
     Indication: STEM CELL TRANSPLANT
     Dosage: 20 MG
  4. CARMUSTINE [Suspect]
  5. MELPHALAN [Suspect]
     Indication: STEM CELL TRANSPLANT
  6. CYCLOSPORINE [Concomitant]
  7. METHOTREXATE [Concomitant]

REACTIONS (6)
  - ANAEMIA HAEMOLYTIC AUTOIMMUNE [None]
  - AUTOIMMUNE THROMBOCYTOPENIA [None]
  - JAUNDICE [None]
  - POLYCHROMASIA [None]
  - RETICULOCYTOSIS [None]
  - SPHEROCYTIC ANAEMIA [None]
